FAERS Safety Report 4959037-6 (Version None)
Quarter: 2006Q1

REPORT INFORMATION
  Report Type: 
  Country: None (occurrence: None)
  Receive Date: 20060328
  Receipt Date: 20060321
  Transmission Date: 20060701
  Serious: Yes (Other)
  Sender: FDA-Public Use
  Company Number: 2006BI002495

PATIENT
  Age: 56 Year
  Sex: Female

DRUGS (8)
  1. AVONEX [Suspect]
     Indication: MULTIPLE SCLEROSIS
     Dosage: 30 UG; QW; IM
     Route: 030
     Dates: start: 19990801
  2. AMANTADINE HCL [Concomitant]
  3. ACYCLOVIR [Concomitant]
  4. PREMARIN [Concomitant]
  5. LEXAPRO [Concomitant]
  6. ASPIRIN [Concomitant]
  7. AMBIEN [Concomitant]
  8. MULTIVITAMIN (NOS) [Concomitant]

REACTIONS (1)
  - MALIGNANT MELANOMA [None]
